FAERS Safety Report 25134652 (Version 1)
Quarter: 2025Q1

REPORT INFORMATION
  Report Type: Spontaneous
  Country: US (occurrence: US)
  Receive Date: 20250328
  Receipt Date: 20250328
  Transmission Date: 20250409
  Serious: Yes (Hospitalization)
  Sender: MYLAN
  Company Number: US-MYLANLABS-2025M1025694

PATIENT
  Age: 64 Year
  Sex: Male

DRUGS (8)
  1. ABIRATERONE [Interacting]
     Active Substance: ABIRATERONE
     Indication: Prostate cancer
  2. ABIRATERONE [Interacting]
     Active Substance: ABIRATERONE
     Route: 065
  3. ABIRATERONE [Interacting]
     Active Substance: ABIRATERONE
     Route: 065
  4. ABIRATERONE [Interacting]
     Active Substance: ABIRATERONE
  5. LOPERAMIDE [Interacting]
     Active Substance: LOPERAMIDE
     Indication: Diarrhoea
  6. LOPERAMIDE [Interacting]
     Active Substance: LOPERAMIDE
     Route: 065
  7. LOPERAMIDE [Interacting]
     Active Substance: LOPERAMIDE
     Route: 065
  8. LOPERAMIDE [Interacting]
     Active Substance: LOPERAMIDE

REACTIONS (3)
  - Electrocardiogram QT prolonged [Unknown]
  - Torsade de pointes [Unknown]
  - Drug interaction [Unknown]
